FAERS Safety Report 15755339 (Version 2)
Quarter: 2019Q1

REPORT INFORMATION
  Report Type: Spontaneous
  Country: RO (occurrence: RO)
  Receive Date: 20181224
  Receipt Date: 20190122
  Transmission Date: 20190417
  Serious: Yes (Hospitalization)
  Sender: FDA-Public Use
  Company Number: RO-ASTRAZENECA-2018SF61649

PATIENT
  Age: 41 Year
  Sex: Male

DRUGS (5)
  1. BRILIQUE [Suspect]
     Active Substance: TICAGRELOR
     Route: 048
     Dates: start: 20180817
  2. SORTIS [Concomitant]
     Active Substance: ATORVASTATIN
     Route: 065
  3. ASA [Concomitant]
     Active Substance: ASPIRIN
     Route: 065
  4. ASPENTER [Concomitant]
     Active Substance: ASPIRIN
     Route: 065
  5. BRILIQUE [Suspect]
     Active Substance: TICAGRELOR
     Route: 048
     Dates: start: 20181118, end: 20181122

REACTIONS (7)
  - Gingival bleeding [Unknown]
  - Acute coronary syndrome [Unknown]
  - Haematoma [Unknown]
  - Essential hypertension [Unknown]
  - Cardiac failure congestive [Unknown]
  - Haematuria [Unknown]
  - Coronary artery disease [Unknown]
